FAERS Safety Report 10299141 (Version 1)
Quarter: 2014Q3

REPORT INFORMATION
  Report Type: Spontaneous
  Country: US (occurrence: US)
  Receive Date: 20140711
  Receipt Date: 20140711
  Transmission Date: 20150326
  Serious: Yes (Other)
  Sender: FDA-Public Use
  Company Number: US-ACTAVIS-2014-14834

PATIENT
  Age: 43 Year
  Sex: Male

DRUGS (8)
  1. DOXORUBICIN (UNKNOWN) [Suspect]
     Active Substance: DOXORUBICIN
     Indication: SYNOVIAL SARCOMA
  2. DOXORUBICIN (UNKNOWN) [Suspect]
     Active Substance: DOXORUBICIN
     Indication: METASTASES TO LUNG
     Dosage: UNK
     Route: 065
  3. GEMCITABINE (ATLLC) [Suspect]
     Active Substance: GEMCITABINE HYDROCHLORIDE
     Indication: METASTASES TO LUNG
     Dosage: UNK
     Route: 065
  4. GEMCITABINE (ATLLC) [Suspect]
     Active Substance: GEMCITABINE HYDROCHLORIDE
     Indication: SYNOVIAL SARCOMA
  5. IFOSFAMIDE. [Suspect]
     Active Substance: IFOSFAMIDE
     Indication: SYNOVIAL SARCOMA
  6. DACARBAZINE. [Suspect]
     Active Substance: DACARBAZINE
     Indication: SYNOVIAL SARCOMA
  7. IFOSFAMIDE. [Suspect]
     Active Substance: IFOSFAMIDE
     Indication: METASTASES TO LUNG
     Dosage: UNK
     Route: 065
  8. DACARBAZINE. [Suspect]
     Active Substance: DACARBAZINE
     Indication: METASTASES TO LUNG
     Dosage: UNK
     Route: 065

REACTIONS (10)
  - Thrombocytopenia [Not Recovered/Not Resolved]
  - Thrombosis in device [None]
  - Henoch-Schonlein purpura [Unknown]
  - Deep vein thrombosis [Unknown]
  - Metastases to lung [None]
  - Metastases to heart [None]
  - Malignant neoplasm progression [None]
  - Synovial sarcoma metastatic [None]
  - Glomerulonephritis [None]
  - Renal failure chronic [Not Recovered/Not Resolved]
